FAERS Safety Report 15463478 (Version 2)
Quarter: 2018Q4

REPORT INFORMATION
  Report Type: Other
  Country: US (occurrence: US)
  Receive Date: 20181004
  Receipt Date: 20181109
  Transmission Date: 20190204
  Serious: Yes (Other)
  Sender: FDA-Public Use
  Company Number: US-ACTELION-A-CH2018-179723

PATIENT
  Age: 51 Year
  Sex: Female

DRUGS (3)
  1. HYDROXYUREA. [Concomitant]
     Active Substance: HYDROXYUREA
  2. TREPROSTINIL. [Concomitant]
     Active Substance: TREPROSTINIL
     Route: 055
  3. BOSENTAN. [Suspect]
     Active Substance: BOSENTAN
     Indication: PULMONARY HYPERTENSION
     Route: 048

REACTIONS (5)
  - Condition aggravated [Unknown]
  - Headache [Unknown]
  - Pulmonary hypertension [Unknown]
  - Pharyngeal disorder [Unknown]
  - Disease progression [Unknown]
